FAERS Safety Report 25199304 (Version 1)
Quarter: 2025Q2

REPORT INFORMATION
  Report Type: Spontaneous
  Country: JP (occurrence: JP)
  Receive Date: 20250415
  Receipt Date: 20250415
  Transmission Date: 20250717
  Serious: Yes (Hospitalization, Other)
  Sender: MERCK SHARP & DOHME LLC
  Company Number: JP-MSD-M2024-50475

PATIENT
  Age: 48 Year
  Sex: Male

DRUGS (3)
  1. KEYTRUDA [Suspect]
     Active Substance: PEMBROLIZUMAB
     Indication: Oesophageal carcinoma
     Dosage: DOSE DESCRIPTION : 200 MILLIGRAM, Q3W?DAILY DOSE : 9.4 MILLIGRAM?REGIMEN DOSE : 200  MILLIGRAM?5 ...
     Route: 041
     Dates: start: 20240417, end: 20240710
  2. CISPLATIN [Suspect]
     Active Substance: CISPLATIN
     Indication: Oesophageal carcinoma
     Route: 042
     Dates: start: 20240417, end: 20240710
  3. FLUOROURACIL [Suspect]
     Active Substance: FLUOROURACIL
     Indication: Oesophageal carcinoma
     Dosage: 800MG ONCE EVERY DAY (DAY 1-5 CONTINUOUS INFUSION FOR 24 HOURS)
     Route: 065
     Dates: start: 20240417, end: 20240710

REACTIONS (3)
  - Malignant neoplasm progression [Unknown]
  - Ascites [Not Recovered/Not Resolved]
  - Renal impairment [Recovered/Resolved]

NARRATIVE: CASE EVENT DATE: 20240617
